FAERS Safety Report 23432189 (Version 1)
Quarter: 2024Q1

REPORT INFORMATION
  Report Type: Spontaneous
  Country: GB (occurrence: GB)
  Receive Date: 20240123
  Receipt Date: 20240123
  Transmission Date: 20240409
  Serious: Yes (Other)
  Sender: FDA-Public Use
  Company Number: GB-PFIZER INC-PV202400005097

PATIENT
  Age: 51 Year
  Sex: Female

DRUGS (1)
  1. GENOTROPIN [Suspect]
     Active Substance: SOMATROPIN
     Dosage: 0.2/0.4MG ALTERNATE DAYS
     Route: 058

REACTIONS (4)
  - Lower limb fracture [Unknown]
  - Osteoporosis [Unknown]
  - Balance disorder [Unknown]
  - Bedridden [Unknown]
